FAERS Safety Report 12455979 (Version 6)
Quarter: 2016Q3

REPORT INFORMATION
  Report Type: Spontaneous
  Country: US (occurrence: US)
  Receive Date: 20160610
  Receipt Date: 20160721
  Transmission Date: 20161109
  Serious: Yes (Life-Threatening, Hospitalization)
  Sender: FDA-Public Use
  Company Number: US-CELGENEUS-USA-2016061360

PATIENT
  Age: 46 Year
  Sex: Female
  Weight: 68.1 kg

DRUGS (7)
  1. LAMICTAL [Concomitant]
     Active Substance: LAMOTRIGINE
     Route: 065
  2. HUMIRA [Concomitant]
     Active Substance: ADALIMUMAB
     Indication: ECZEMA
     Route: 065
  3. SEROQUEL [Concomitant]
     Active Substance: QUETIAPINE FUMARATE
     Indication: ECZEMA
     Route: 065
     Dates: start: 20160528
  4. LAMICTAL [Concomitant]
     Active Substance: LAMOTRIGINE
     Indication: BIPOLAR DISORDER
     Route: 065
  5. OTEZLA [Suspect]
     Active Substance: APREMILAST
     Indication: PSORIASIS
     Dosage: 60 MILLIGRAM
     Route: 048
     Dates: end: 20160527
  6. STELARA [Concomitant]
     Active Substance: USTEKINUMAB
     Indication: ECZEMA
     Route: 065
     Dates: start: 20160428
  7. SEROQUEL [Concomitant]
     Active Substance: QUETIAPINE FUMARATE
     Route: 065
     Dates: start: 20160529

REACTIONS (3)
  - Suicide attempt [Recovered/Resolved]
  - Anxiety [Recovered/Resolved]
  - Major depression [Recovered/Resolved]

NARRATIVE: CASE EVENT DATE: 20160528
